FAERS Safety Report 16267212 (Version 3)
Quarter: 2019Q3

REPORT INFORMATION
  Report Type: Spontaneous
  Country: JP (occurrence: JP)
  Receive Date: 20190502
  Receipt Date: 20190819
  Transmission Date: 20191004
  Serious: Yes (Life-Threatening, Hospitalization)
  Sender: FDA-Public Use
  Company Number: JP-CELGENEUS-JPN-20181203892

PATIENT
  Age: 76 Year
  Sex: Male
  Weight: 64 kg

DRUGS (92)
  1. VENETOCLAX. [Concomitant]
     Active Substance: VENETOCLAX
     Indication: ACUTE MYELOID LEUKAEMIA
     Route: 048
     Dates: start: 20180731, end: 20180731
  2. MOSAPRIDE CITRATE [Concomitant]
     Active Substance: MOSAPRIDE CITRATE
     Indication: GASTRITIS
     Dosage: 45 MILLIGRAM
     Route: 048
     Dates: start: 2015
  3. HEPARINOID [Concomitant]
     Active Substance: CHONDROITIN SULFATE (BOVINE)
     Indication: DRY SKIN
     Dosage: .3 PERCENT
     Route: 061
     Dates: start: 20180805
  4. MEROPENEM. [Concomitant]
     Active Substance: MEROPENEM
     Dosage: 20 MILLIGRAM
     Route: 041
     Dates: start: 20180816
  5. PARACETAMOL [Concomitant]
     Active Substance: ACETAMINOPHEN
     Dosage: 800 MILLIGRAM
     Route: 041
     Dates: start: 20181214, end: 20181214
  6. VANCOMYCIN [Concomitant]
     Active Substance: VANCOMYCIN
     Dosage: 1.25 GRAM
     Route: 041
     Dates: start: 20181209, end: 20181209
  7. VORICONAZOLE. [Concomitant]
     Active Substance: VORICONAZOLE
     Dosage: 200 MILLIGRAM
     Route: 041
     Dates: start: 20181206, end: 20181206
  8. VORICONAZOLE. [Concomitant]
     Active Substance: VORICONAZOLE
     Dosage: 200 MILLIGRAM
     Route: 041
     Dates: start: 20181210, end: 20190118
  9. FILGRASTIM [Concomitant]
     Active Substance: FILGRASTIM
     Dosage: 300 MICROGRAM
     Route: 058
     Dates: start: 20181218
  10. MINOCYCLINE HYDROCHLORIDE. [Concomitant]
     Active Substance: MINOCYCLINE HYDROCHLORIDE
     Indication: FEBRILE NEUTROPENIA
     Dosage: 200 MILLIGRAM
     Route: 041
     Dates: start: 20181207, end: 20181207
  11. MINOCYCLINE HYDROCHLORIDE. [Concomitant]
     Active Substance: MINOCYCLINE HYDROCHLORIDE
     Dosage: 100 MILLIGRAM
     Route: 041
     Dates: start: 20181208, end: 20181213
  12. CALCICOL [Concomitant]
     Active Substance: CALCIUM GLUCONATE
     Dosage: 15 MILLILITER
     Route: 041
     Dates: start: 20190102
  13. OXYGEN. [Concomitant]
     Active Substance: OXYGEN
     Indication: PRODUCT USED FOR UNKNOWN INDICATION
     Route: 065
     Dates: start: 20181206, end: 20190105
  14. SODIUM PHOSPHATE [Concomitant]
     Active Substance: SODIUM PHOSPHATE
     Dosage: 100 MILLIGRAM
     Route: 041
     Dates: start: 20181209, end: 20181223
  15. POTASSIUM CHLORIDE. [Concomitant]
     Active Substance: POTASSIUM CHLORIDE
     Indication: HYPOKALAEMIA
     Dosage: 50 MILLILITER
     Route: 041
     Dates: start: 20181205, end: 20181205
  16. POTASSIUM CHLORIDE. [Concomitant]
     Active Substance: POTASSIUM CHLORIDE
     Dosage: 140 MILLILITER
     Route: 041
     Dates: start: 20181210, end: 20181211
  17. VENETOCLAX. [Concomitant]
     Active Substance: VENETOCLAX
     Route: 048
     Dates: start: 20180802, end: 20180921
  18. REBAMIPIDE [Concomitant]
     Active Substance: REBAMIPIDE
     Dosage: 20 MILLIGRAM
     Route: 048
     Dates: start: 20180816
  19. HEPARINOID [Concomitant]
     Active Substance: CHONDROITIN SULFATE (BOVINE)
     Dosage: 20 MILLIGRAM
     Route: 061
     Dates: start: 20180816
  20. CARBOCISTEINE [Concomitant]
     Active Substance: CARBOCYSTEINE
     Dosage: 20 MILLIGRAM
     Route: 048
     Dates: start: 20180816
  21. PARACETAMOL [Concomitant]
     Active Substance: ACETAMINOPHEN
     Dosage: 800 MILLIGRAM
     Route: 041
     Dates: start: 20181214, end: 20181214
  22. VANCOMYCIN [Concomitant]
     Active Substance: VANCOMYCIN
     Indication: NEUTROPENIC COLITIS
     Dosage: 1.25 GRAM
     Route: 041
     Dates: start: 20181204, end: 20181208
  23. VANCOMYCIN [Concomitant]
     Active Substance: VANCOMYCIN
     Dosage: 1.25 GRAM
     Route: 041
     Dates: start: 20181210, end: 20181213
  24. VANCOMYCIN [Concomitant]
     Active Substance: VANCOMYCIN
     Dosage: 1 GRAM
     Route: 041
     Dates: start: 20181214, end: 20181215
  25. VORICONAZOLE. [Concomitant]
     Active Substance: VORICONAZOLE
     Indication: BRONCHOPULMONARY ASPERGILLOSIS
     Dosage: 100 MILLIGRAM
     Route: 048
     Dates: start: 20181204, end: 20181206
  26. OMEPRAZOLE. [Concomitant]
     Active Substance: OMEPRAZOLE
     Dosage: 40 MILLIGRAM
     Route: 041
     Dates: start: 20181207
  27. SODIUM PHOSPHATE [Concomitant]
     Active Substance: SODIUM PHOSPHATE
     Dosage: 20 MILLILITER
     Route: 041
     Dates: start: 20181226, end: 20181226
  28. SODIUM PHOSPHATE [Concomitant]
     Active Substance: SODIUM PHOSPHATE
     Dosage: 40 MILLILITER
     Route: 041
     Dates: start: 20190104
  29. POTASSIUM CHLORIDE. [Concomitant]
     Active Substance: POTASSIUM CHLORIDE
     Dosage: 140 MILLILITER
     Route: 041
     Dates: start: 20181209, end: 20181209
  30. MEROPENEM. [Concomitant]
     Active Substance: MEROPENEM
     Indication: ENTEROCOLITIS
     Dosage: 9 MILLIGRAM
     Route: 041
     Dates: start: 20180922
  31. TRAZODONE HYDROCHLORIDE. [Concomitant]
     Active Substance: TRAZODONE HYDROCHLORIDE
     Dosage: 20 MILLIGRAM
     Route: 048
     Dates: start: 20180816
  32. PARACETAMOL [Concomitant]
     Active Substance: ACETAMINOPHEN
     Dosage: 800 MILLIGRAM
     Route: 041
     Dates: start: 20181227, end: 20181228
  33. MINOCYCLINE HYDROCHLORIDE. [Concomitant]
     Active Substance: MINOCYCLINE HYDROCHLORIDE
     Dosage: 100 MILLIGRAM
     Route: 041
     Dates: start: 20190101, end: 20190101
  34. SODIUM PHOSPHATE [Concomitant]
     Active Substance: SODIUM PHOSPHATE
     Indication: HYPOPHOSPHATAEMIA
     Dosage: 180 MILLILITER
     Route: 041
     Dates: start: 20181014, end: 20181205
  35. POTASSIUM CHLORIDE. [Concomitant]
     Active Substance: POTASSIUM CHLORIDE
     Dosage: 20 MILLILITER
     Route: 041
     Dates: start: 20181221, end: 20181225
  36. POTASSIUM CHLORIDE. [Concomitant]
     Active Substance: POTASSIUM CHLORIDE
     Dosage: 40 MILLILITER
     Route: 041
     Dates: start: 20181226, end: 20181227
  37. AZACITIDINE. [Suspect]
     Active Substance: AZACITIDINE
     Indication: ACUTE MYELOID LEUKAEMIA
     Dosage: 75 MILLIGRAM/SQ. METER
     Route: 041
     Dates: start: 20180731, end: 20181118
  38. VENETOCLAX. [Concomitant]
     Active Substance: VENETOCLAX
     Route: 048
     Dates: start: 20181112, end: 20181206
  39. POLAPREZINC [Concomitant]
     Active Substance: POLAPREZINC
     Indication: GASTRITIS
     Dosage: 300 MILLIGRAM
     Route: 048
     Dates: start: 20180801
  40. POLAPREZINC [Concomitant]
     Active Substance: POLAPREZINC
     Dosage: 20 MILLIGRAM
     Route: 048
     Dates: start: 20180816
  41. TRAZODONE HYDROCHLORIDE. [Concomitant]
     Active Substance: TRAZODONE HYDROCHLORIDE
     Indication: INSOMNIA
     Dosage: 25 MILLIGRAM
     Route: 048
     Dates: start: 20181016, end: 20181208
  42. PARACETAMOL [Concomitant]
     Active Substance: ACETAMINOPHEN
     Dosage: 800 MILLIGRAM
     Route: 041
     Dates: start: 20181215, end: 20181215
  43. PARACETAMOL [Concomitant]
     Active Substance: ACETAMINOPHEN
     Dosage: 800 MILLIGRAM
     Route: 041
     Dates: start: 20181217, end: 20181217
  44. PARACETAMOL [Concomitant]
     Active Substance: ACETAMINOPHEN
     Dosage: 800 MILLIGRAM
     Route: 041
     Dates: start: 20181222, end: 20181224
  45. NOVOLIN [Concomitant]
     Active Substance: INSULIN HUMAN
     Indication: HYPERGLYCAEMIA
     Dosage: 24 UNITS
     Route: 041
     Dates: start: 20181206
  46. MINOCYCLINE HYDROCHLORIDE. [Concomitant]
     Active Substance: MINOCYCLINE HYDROCHLORIDE
     Dosage: 200 MILLIGRAM
     Route: 041
     Dates: start: 20181214, end: 20181214
  47. SODIUM CHLORIDE. [Concomitant]
     Active Substance: SODIUM CHLORIDE
     Dosage: 40 MILLILITER
     Route: 041
     Dates: start: 20181220, end: 20181223
  48. POTASSIUM CHLORIDE. [Concomitant]
     Active Substance: POTASSIUM CHLORIDE
     Dosage: 80 MILLILITER
     Route: 041
     Dates: start: 20181212, end: 20181213
  49. HEPARIN SODIUM. [Concomitant]
     Active Substance: HEPARIN SODIUM
     Indication: PROPHYLAXIS
     Dosage: 5 MILLILITER
     Route: 041
     Dates: start: 20180805
  50. PARACETAMOL [Concomitant]
     Active Substance: ACETAMINOPHEN
     Dosage: 800 MILLIGRAM
     Route: 041
     Dates: start: 20181219, end: 20181219
  51. PARACETAMOL [Concomitant]
     Active Substance: ACETAMINOPHEN
     Dosage: 800 MILLIGRAM
     Route: 041
     Dates: start: 20181225, end: 20181225
  52. VORICONAZOLE. [Concomitant]
     Active Substance: VORICONAZOLE
     Dosage: 200 MILLIGRAM
     Route: 041
     Dates: start: 20181219, end: 20190119
  53. VORICONAZOLE. [Concomitant]
     Active Substance: VORICONAZOLE
     Dosage: 200 MILLIGRAM
     Route: 041
     Dates: start: 20181224, end: 20190110
  54. CALCICOL [Concomitant]
     Active Substance: CALCIUM GLUCONATE
     Indication: HYPOCALCAEMIA
     Dosage: 15 MILLILITER
     Route: 041
     Dates: start: 20181207, end: 20181207
  55. METHYLPREDNISOLONE. [Concomitant]
     Active Substance: METHYLPREDNISOLONE
     Indication: ORGANISING PNEUMONIA
     Dosage: 120 MILLIGRAM
     Route: 041
     Dates: start: 20181228, end: 20181230
  56. POTASSIUM CHLORIDE. [Concomitant]
     Active Substance: POTASSIUM CHLORIDE
     Dosage: 100 MILLILITER
     Route: 041
     Dates: start: 20181208, end: 20181208
  57. FEBUXOSTAT. [Concomitant]
     Active Substance: FEBUXOSTAT
     Indication: PROPHYLAXIS
     Dosage: 60 MILLIGRAM
     Route: 048
     Dates: start: 20180728, end: 20180815
  58. FEBUXOSTAT. [Concomitant]
     Active Substance: FEBUXOSTAT
     Dosage: 20 MILLIGRAM
     Route: 048
     Dates: start: 20180816, end: 20181206
  59. MOSAPRIDE CITRATE [Concomitant]
     Active Substance: MOSAPRIDE CITRATE
     Dosage: 20 MILLIGRAM
     Route: 048
     Dates: start: 20180816
  60. REBAMIPIDE [Concomitant]
     Active Substance: REBAMIPIDE
     Indication: GASTRITIS
     Dosage: 30 MILLIGRAM
     Route: 048
     Dates: start: 2015
  61. LANSOPRAZOLE. [Concomitant]
     Active Substance: LANSOPRAZOLE
     Indication: GASTRITIS
     Dosage: 30 MILLIGRAM
     Route: 048
     Dates: start: 20180801
  62. PARACETAMOL [Concomitant]
     Active Substance: ACETAMINOPHEN
     Dosage: 800 MILLIGRAM
     Route: 041
     Dates: start: 20181212, end: 20181213
  63. PARACETAMOL [Concomitant]
     Active Substance: ACETAMINOPHEN
     Dosage: 800 MILLIGRAM
     Route: 041
     Dates: start: 20181218, end: 20181218
  64. VANCOMYCIN [Concomitant]
     Active Substance: VANCOMYCIN
     Dosage: 1 GRAM
     Route: 041
     Dates: start: 20181216, end: 20181216
  65. VORICONAZOLE. [Concomitant]
     Active Substance: VORICONAZOLE
     Dosage: 200 MILLIGRAM
     Route: 041
     Dates: start: 20181219
  66. MINOCYCLINE HYDROCHLORIDE. [Concomitant]
     Active Substance: MINOCYCLINE HYDROCHLORIDE
     Dosage: 100 MILLIGRAM
     Route: 041
     Dates: start: 20190102
  67. METHYLPREDNISOLONE. [Concomitant]
     Active Substance: METHYLPREDNISOLONE
     Dosage: 60 MILLIGRAM
     Route: 041
     Dates: start: 20181231
  68. SODIUM PHOSPHATE [Concomitant]
     Active Substance: SODIUM PHOSPHATE
     Dosage: 80 MILLILITER
     Route: 041
     Dates: start: 20181208, end: 20181208
  69. POTASSIUM CHLORIDE. [Concomitant]
     Active Substance: POTASSIUM CHLORIDE
     Dosage: 120 MILLILITER
     Route: 041
     Dates: start: 20181207, end: 20181207
  70. POTASSIUM CHLORIDE. [Concomitant]
     Active Substance: POTASSIUM CHLORIDE
     Dosage: 20 MILLILITER
     Route: 041
     Dates: start: 20190101, end: 20190104
  71. VENETOCLAX. [Concomitant]
     Active Substance: VENETOCLAX
     Route: 048
     Dates: start: 20180801, end: 20180801
  72. LANSOPRAZOLE. [Concomitant]
     Active Substance: LANSOPRAZOLE
     Dosage: 20 MILLIGRAM
     Route: 048
     Dates: start: 20180816
  73. CARBOCISTEINE [Concomitant]
     Active Substance: CARBOCYSTEINE
     Indication: NASOPHARYNGITIS
     Dosage: 4500 MILLIGRAM
     Route: 048
     Dates: start: 20180930
  74. PARACETAMOL [Concomitant]
     Active Substance: ACETAMINOPHEN
     Indication: FEBRILE NEUTROPENIA
     Dosage: 800 MILLIGRAM
     Route: 041
     Dates: start: 20181206, end: 20181207
  75. PARACETAMOL [Concomitant]
     Active Substance: ACETAMINOPHEN
     Dosage: 800 MILLIGRAM
     Route: 041
     Dates: start: 20181209, end: 20181211
  76. PARACETAMOL [Concomitant]
     Active Substance: ACETAMINOPHEN
     Dosage: 800 MILLIGRAM
     Route: 041
     Dates: start: 20181220, end: 20181221
  77. OMEPRAZOLE. [Concomitant]
     Active Substance: OMEPRAZOLE
     Indication: CHRONIC GASTRITIS
     Dosage: 20 MILLIGRAM
     Route: 041
     Dates: start: 20181206, end: 20181206
  78. CALCICOL [Concomitant]
     Active Substance: CALCIUM GLUCONATE
     Dosage: 15 MILLILITER
     Route: 041
     Dates: start: 20181208, end: 20181221
  79. WHITE PETROLATUM [Concomitant]
     Active Substance: PETROLATUM
     Indication: DRY SKIN
     Route: 061
     Dates: start: 20181208
  80. POTASSIUM CHLORIDE. [Concomitant]
     Active Substance: POTASSIUM CHLORIDE
     Dosage: 60 MILLILITER
     Route: 041
     Dates: start: 20181206, end: 20181206
  81. POTASSIUM CHLORIDE. [Concomitant]
     Active Substance: POTASSIUM CHLORIDE
     Dosage: 60 MILLILITER
     Route: 041
     Dates: start: 20181220, end: 20181220
  82. POTASSIUM CHLORIDE. [Concomitant]
     Active Substance: POTASSIUM CHLORIDE
     Dosage: 20 MILLILITER
     Route: 041
     Dates: start: 20181228, end: 20181230
  83. HEPARIN SODIUM. [Concomitant]
     Active Substance: HEPARIN SODIUM
     Dosage: 20 MILLIGRAM
     Route: 041
     Dates: start: 20180816
  84. PARACETAMOL [Concomitant]
     Active Substance: ACETAMINOPHEN
     Dosage: 800 MILLIGRAM
     Route: 041
     Dates: start: 20181216, end: 20181216
  85. VORICONAZOLE. [Concomitant]
     Active Substance: VORICONAZOLE
     Dosage: 400 MILLIGRAM
     Route: 041
     Dates: start: 20181207, end: 20190108
  86. VORICONAZOLE. [Concomitant]
     Active Substance: VORICONAZOLE
     Dosage: 200 MILLIGRAM
     Route: 041
     Dates: start: 20181209, end: 20190109
  87. VORICONAZOLE. [Concomitant]
     Active Substance: VORICONAZOLE
     Dosage: 100 MILLIGRAM
     Route: 041
     Dates: start: 20181223, end: 20181223
  88. FILGRASTIM [Concomitant]
     Active Substance: FILGRASTIM
     Indication: LEUKOPENIA
     Dosage: 300 MICROGRAM
     Route: 058
     Dates: start: 20181208, end: 20181216
  89. MINOCYCLINE HYDROCHLORIDE. [Concomitant]
     Active Substance: MINOCYCLINE HYDROCHLORIDE
     Dosage: 100 MILLIGRAM
     Route: 041
     Dates: start: 20181215, end: 20181231
  90. BESOFTEN [Concomitant]
     Active Substance: PENTOSAN POLYSULFATE SODIUM
     Indication: DRY SKIN
     Dosage: .3 PERCENT
     Route: 061
     Dates: start: 20181202
  91. SODIUM CHLORIDE. [Concomitant]
     Active Substance: SODIUM CHLORIDE
     Indication: PROPHYLAXIS
     Dosage: 20 MILLILITER
     Route: 041
     Dates: start: 20181206, end: 20181219
  92. POTASSIUM CHLORIDE. [Concomitant]
     Active Substance: POTASSIUM CHLORIDE
     Dosage: 40 MILLILITER
     Route: 041
     Dates: start: 20181214, end: 20181219

REACTIONS (1)
  - Cardiac failure [Recovered/Resolved]

NARRATIVE: CASE EVENT DATE: 20181206
